FAERS Safety Report 7498557-X (Version None)
Quarter: 2011Q2

REPORT INFORMATION
  Report Type: 
  Country: None (occurrence: None)
  Receive Date: 20110516
  Receipt Date: 20110503
  Transmission Date: 20111010
  Serious: Yes (Death)
  Sender: FDA-Public Use
  Company Number: 032229

PATIENT
  Sex: Female

DRUGS (2)
  1. FOLIC ACID [Concomitant]
  2. KEPPRA [Suspect]
     Indication: JUVENILE MYOCLONIC EPILEPSY
     Dosage: 2 G, TRANSPLACENTAL
     Route: 064
     Dates: start: 20100601

REACTIONS (6)
  - INTRA-UTERINE DEATH [None]
  - PLACENTAL TRANSFUSION SYNDROME [None]
  - OLIGOHYDRAMNIOS [None]
  - IATROGENIC INJURY [None]
  - ABORTION INDUCED [None]
  - MATERNAL DRUGS AFFECTING FOETUS [None]
